FAERS Safety Report 18115172 (Version 1)
Quarter: 2020Q3

REPORT INFORMATION
  Report Type: Report from Study
  Country: US (occurrence: US)
  Receive Date: 20200805
  Receipt Date: 20200805
  Transmission Date: 20201103
  Serious: Yes (Hospitalization)
  Sender: FDA-Public Use
  Company Number: US-ACTELION-A-US2014-96272

PATIENT
  Age: 89 Year
  Sex: Female
  Weight: 61.68 kg

DRUGS (3)
  1. OPSUMIT [Suspect]
     Active Substance: MACITENTAN
     Indication: PULMONARY ARTERIAL HYPERTENSION
     Dosage: 10 MG, QD
     Route: 048
     Dates: start: 20140224
  2. OPSUMIT [Suspect]
     Active Substance: MACITENTAN
     Dosage: 10 MG, QD
     Route: 048
  3. WARFARIN [Concomitant]
     Active Substance: WARFARIN

REACTIONS (32)
  - Transient ischaemic attack [Unknown]
  - Pigmentation disorder [Unknown]
  - Choking [Unknown]
  - Neck pain [Unknown]
  - Dehydration [Unknown]
  - Nasal congestion [Unknown]
  - Fall [Unknown]
  - Back pain [Unknown]
  - Respiratory tract congestion [Unknown]
  - Oropharyngeal pain [Unknown]
  - Lacrimation increased [Unknown]
  - Orthopnoea [Unknown]
  - Diarrhoea [Unknown]
  - Dyspnoea [Unknown]
  - Hypersensitivity [Unknown]
  - Fatigue [Unknown]
  - Hypoaesthesia [Unknown]
  - Sinus congestion [Unknown]
  - Dizziness exertional [Unknown]
  - Decreased appetite [Unknown]
  - Nasopharyngitis [Unknown]
  - Hypotension [Unknown]
  - Arthralgia [Unknown]
  - Musculoskeletal discomfort [Unknown]
  - Productive cough [Unknown]
  - Poor quality sleep [Unknown]
  - Acne [Unknown]
  - Sneezing [Unknown]
  - Insomnia [Unknown]
  - Headache [Unknown]
  - Pruritus [Unknown]
  - Cough [Unknown]

NARRATIVE: CASE EVENT DATE: 2018
